FAERS Safety Report 13915434 (Version 1)
Quarter: 2017Q3

REPORT INFORMATION
  Report Type: Spontaneous
  Country: BR (occurrence: BR)
  Receive Date: 20170829
  Receipt Date: 20170829
  Transmission Date: 20171127
  Serious: Yes (Death)
  Sender: FDA-Public Use
  Company Number: BR-BAXTER-2017BAX030750

PATIENT
  Age: 65 Year
  Sex: Female

DRUGS (2)
  1. CLORETO DE S?DIO - BAXTER [Suspect]
     Active Substance: SODIUM CHLORIDE
     Indication: PRODUCT USED FOR UNKNOWN INDICATION
     Dosage: SPEED: 333 ML/HR
     Route: 042
     Dates: start: 20170818, end: 20170818
  2. PLASMA-LYTE [Suspect]
     Active Substance: ELECTROLYTES NOS
     Indication: PRODUCT USED FOR UNKNOWN INDICATION
     Route: 065

REACTIONS (1)
  - Vasoplegia syndrome [Fatal]

NARRATIVE: CASE EVENT DATE: 20170818
